FAERS Safety Report 23813357 (Version 1)
Quarter: 2024Q2

REPORT INFORMATION
  Report Type: Spontaneous
  Country: US (occurrence: US)
  Receive Date: 20240503
  Receipt Date: 20240503
  Transmission Date: 20240716
  Serious: No
  Sender: FDA-Public Use
  Company Number: US-IPSEN Group, Research and Development-2024-07546

PATIENT
  Sex: Male
  Weight: 58 kg

DRUGS (1)
  1. INCRELEX [Suspect]
     Active Substance: MECASERMIN
     Indication: Product used for unknown indication
     Route: 058
     Dates: start: 20170710

REACTIONS (2)
  - Injury [Unknown]
  - Accident [Unknown]
